FAERS Safety Report 9146996 (Version 3)
Quarter: 2013Q2

REPORT INFORMATION
  Report Type: Report from Study
  Country: DE (occurrence: DE)
  Receive Date: 20130307
  Receipt Date: 20130426
  Transmission Date: 20140414
  Serious: Yes (Death)
  Sender: FDA-Public Use
  Company Number: DE-ROCHE-1198844

PATIENT
  Age: 81 Year
  Sex: Male
  Weight: 75.5 kg

DRUGS (1)
  1. MIRCERA [Suspect]
     Indication: NEPHROGENIC ANAEMIA
     Dosage: DATE OF LAST DOSE PRIOR TO SAE:07/DEC/2012
     Route: 042
     Dates: start: 20100511

REACTIONS (2)
  - Myocardial infarction [Fatal]
  - Atrial flutter [Fatal]
